FAERS Safety Report 23605068 (Version 5)
Quarter: 2024Q2

REPORT INFORMATION
  Report Type: Spontaneous
  Country: US (occurrence: US)
  Receive Date: 20240307
  Receipt Date: 20240429
  Transmission Date: 20240715
  Serious: No
  Sender: FDA-Public Use
  Company Number: US-PFIZER INC-PV202400022697

PATIENT
  Age: 13 Year
  Sex: Male

DRUGS (1)
  1. GENOTROPIN [Suspect]
     Active Substance: SOMATROPIN
     Dosage: 3.6 MG PER DAY, 6 DAYS PER WEEK, INJECTION

REACTIONS (4)
  - Accidental overdose [Unknown]
  - Device difficult to use [Unknown]
  - Device issue [Unknown]
  - Device leakage [Unknown]
